FAERS Safety Report 19315785 (Version 1)
Quarter: 2021Q2

REPORT INFORMATION
  Report Type: Spontaneous
  Country: US (occurrence: US)
  Receive Date: 20210527
  Receipt Date: 20210527
  Transmission Date: 20210717
  Serious: Yes (Other)
  Sender: FDA-Public Use
  Company Number: NVSC2021US117108

PATIENT
  Age: 4 Year
  Sex: Male

DRUGS (3)
  1. CALCITRIOL. [Concomitant]
     Active Substance: CALCITRIOL
     Indication: HYPOPHOSPHATAEMIA
     Dosage: 80 NG/KG QD
     Route: 065
  2. ZOLEDRONIC ACID [Suspect]
     Active Substance: ZOLEDRONIC ACID
     Indication: ALBRIGHT^S DISEASE
     Dosage: UNK
     Route: 065
  3. ZOLEDRONIC ACID [Suspect]
     Active Substance: ZOLEDRONIC ACID
     Indication: FIBROUS DYSPLASIA OF BONE

REACTIONS (3)
  - Product use in unapproved indication [Unknown]
  - Fanconi syndrome [Unknown]
  - Product use issue [Unknown]
